FAERS Safety Report 13355154 (Version 1)
Quarter: 2017Q1

REPORT INFORMATION
  Report Type: Spontaneous
  Country: US (occurrence: US)
  Receive Date: 20170321
  Receipt Date: 20170321
  Transmission Date: 20170429
  Serious: No
  Sender: FDA-Public Use
  Company Number: US-BAUSCH-BL-2016-030441

PATIENT
  Age: 79 Year
  Sex: Male

DRUGS (1)
  1. RETIN-A [Suspect]
     Active Substance: TRETINOIN
     Indication: PIGMENTATION DISORDER
     Route: 065

REACTIONS (1)
  - Off label use [Unknown]
